FAERS Safety Report 16349463 (Version 2)
Quarter: 2019Q2

REPORT INFORMATION
  Report Type: Spontaneous
  Country: EG (occurrence: EG)
  Receive Date: 20190523
  Receipt Date: 20190606
  Transmission Date: 20190711
  Serious: Yes (Other)
  Sender: FDA-Public Use
  Company Number: EG-ENDO PHARMACEUTICALS INC-2019-104869

PATIENT
  Sex: Female

DRUGS (1)
  1. CAPOTEN [Suspect]
     Active Substance: CAPTOPRIL
     Indication: NEPHROTIC SYNDROME
     Dosage: UNK UNKNOWN, OD
     Route: 065

REACTIONS (3)
  - Drug hypersensitivity [Recovering/Resolving]
  - Off label use [Recovered/Resolved]
  - Toxic epidermal necrolysis [Recovering/Resolving]
